FAERS Safety Report 15831933 (Version 1)
Quarter: 2019Q1

REPORT INFORMATION
  Report Type: Spontaneous
  Country: US (occurrence: US)
  Receive Date: 20190115
  Receipt Date: 20190115
  Transmission Date: 20190417
  Serious: Yes (Disabling)
  Sender: FDA-Public Use
  Company Number: None

PATIENT
  Age: 88 Year
  Sex: Female
  Weight: 87.5 kg

DRUGS (2)
  1. ASPIRIN. [Suspect]
     Active Substance: ASPIRIN
     Indication: CEREBROVASCULAR ACCIDENT
     Route: 048
     Dates: start: 20181104, end: 20181104
  2. CLOPIDOGREL 75 MG DAILY [Concomitant]
     Dates: start: 20181104, end: 20181104

REACTIONS (5)
  - Basal ganglia haemorrhage [None]
  - Cerebral haemorrhage [None]
  - Platelet transfusion [None]
  - Cerebrovascular accident [None]
  - Gastrostomy [None]

NARRATIVE: CASE EVENT DATE: 20181104
